FAERS Safety Report 23385038 (Version 1)
Quarter: 2024Q1

REPORT INFORMATION
  Report Type: Report from Study
  Country: US (occurrence: US)
  Receive Date: 20240109
  Receipt Date: 20240109
  Transmission Date: 20240410
  Serious: Yes (Hospitalization)
  Sender: FDA-Public Use
  Company Number: US-JAZZ PHARMACEUTICALS-2023-US-006363

PATIENT
  Sex: Male

DRUGS (4)
  1. EPIDIOLEX [Suspect]
     Active Substance: CANNABIDIOL
     Indication: Epilepsy
     Dosage: 2 MILLILITER
     Route: 048
     Dates: start: 202203
  2. EPIDIOLEX [Suspect]
     Active Substance: CANNABIDIOL
     Indication: Partial seizures
     Dosage: 1 MILLILITER, BID
     Dates: start: 202204
  3. EPIDIOLEX [Suspect]
     Active Substance: CANNABIDIOL
     Indication: Focal dyscognitive seizures
  4. EVEROLIMUS [Concomitant]
     Active Substance: EVEROLIMUS
     Indication: Product used for unknown indication
     Dosage: UNK

REACTIONS (3)
  - Hospitalisation [Unknown]
  - Vomiting [Unknown]
  - Off label use [Unknown]
